FAERS Safety Report 5227211-X (Version None)
Quarter: 2007Q1

REPORT INFORMATION
  Report Type: 
  Country: None (occurrence: None)
  Receive Date: 20070202
  Receipt Date: 20070129
  Transmission Date: 20070707
  Serious: Yes (Disabling)
  Sender: FDA-Public Use
  Company Number: JP-JPN-A200605569

PATIENT
  Age: 54 Year
  Sex: Male
  Weight: 50 kg

DRUGS (3)
  1. PAXIL [Suspect]
     Indication: DEPRESSION
     Dosage: 10MG THREE TIMES PER DAY
     Route: 048
     Dates: start: 20060831, end: 20060914
  2. LORAZEPAM [Concomitant]
     Indication: DEPRESSION
     Dosage: 1.5MG PER DAY
     Route: 048
     Dates: start: 20060831, end: 20061228
  3. MYSLEE [Concomitant]
     Indication: DEPRESSION
     Dosage: 5MG PER DAY
     Route: 048
     Dates: start: 20060831, end: 20061026

REACTIONS (2)
  - ACCOMMODATION DISORDER [None]
  - VISUAL ACUITY REDUCED [None]
